FAERS Safety Report 7219955-5 (Version None)
Quarter: 2011Q1

REPORT INFORMATION
  Report Type: 
  Country: None (occurrence: None)
  Receive Date: 20110111
  Receipt Date: 20101221
  Transmission Date: 20110831
  Serious: Yes (Hospitalization)
  Sender: FDA-Public Use
  Company Number: US-B.I. PHARMACEUTICALS,INC./RIDGEFIELD-2010-BP-11052BP

PATIENT
  Sex: Female
  Weight: 73.48 kg

DRUGS (1)
  1. MIRAPEX [Suspect]
     Indication: RESTLESS LEGS SYNDROME
     Dates: start: 20040301, end: 20100301

REACTIONS (7)
  - ANXIETY [None]
  - DEPRESSION [None]
  - SUICIDAL IDEATION [None]
  - PATHOLOGICAL GAMBLING [None]
  - IMPULSE-CONTROL DISORDER [None]
  - PAIN [None]
  - EMOTIONAL DISTRESS [None]
